FAERS Safety Report 17635575 (Version 3)
Quarter: 2021Q1

REPORT INFORMATION
  Report Type: Spontaneous
  Country: JP (occurrence: JP)
  Receive Date: 20200407
  Receipt Date: 20210326
  Transmission Date: 20210419
  Serious: Yes (Other)
  Sender: FDA-Public Use
  Company Number: JP-009507513-2004JPN000008J

PATIENT
  Age: 53 Year
  Sex: Male
  Weight: 73 kg

DRUGS (10)
  1. BRIDION [Suspect]
     Active Substance: SUGAMMADEX
     Indication: NEUROMUSCULAR BLOCKADE REVERSAL
     Dosage: 20 MILLIGRAM
     Route: 051
  2. FENTANYL. [Concomitant]
     Active Substance: FENTANYL
     Indication: MAINTENANCE OF ANAESTHESIA
     Dosage: 200 MICROGRAM
     Route: 065
  3. FENTANYL. [Concomitant]
     Active Substance: FENTANYL
     Dosage: 200 MICROGRAM
     Route: 065
  4. PROPOFOL. [Concomitant]
     Active Substance: PROPOFOL
     Indication: MAINTENANCE OF ANAESTHESIA
  5. FENTANYL. [Concomitant]
     Active Substance: FENTANYL
     Dosage: 200 MICROGRAM
     Route: 065
  6. REMIFENTANIL HYDROCHLORIDE. [Concomitant]
     Active Substance: REMIFENTANIL HYDROCHLORIDE
     Indication: MAINTENANCE OF ANAESTHESIA
     Dosage: 0.08?0.25 GAMMA
     Route: 065
  7. FENTANYL. [Concomitant]
     Active Substance: FENTANYL
     Dosage: 200 MICROGRAM
     Route: 065
  8. SEVOFLURANE. [Concomitant]
     Active Substance: SEVOFLURANE
     Indication: MAINTENANCE OF ANAESTHESIA
     Dosage: UNK
     Route: 065
  9. ESLAX INTRAVENOUS 25MG/2.5ML [Concomitant]
     Active Substance: ROCURONIUM BROMIDE
     Indication: MAINTENANCE OF ANAESTHESIA
     Dosage: UNK
     Route: 051
  10. PROPOFOL. [Concomitant]
     Active Substance: PROPOFOL
     Indication: INDUCTION OF ANAESTHESIA
     Dosage: UNK
     Route: 065

REACTIONS (1)
  - Respiratory failure [Recovered/Resolved]
